FAERS Safety Report 7617173-X (Version None)
Quarter: 2011Q3

REPORT INFORMATION
  Report Type: 
  Country: None (occurrence: None)
  Receive Date: 20110718
  Receipt Date: 20110713
  Transmission Date: 20111222
  Serious: Yes (Hospitalization)
  Sender: FDA-Public Use
  Company Number: US-TEVA-282568USA

PATIENT

DRUGS (3)
  1. OXCARBAZEPINE [Concomitant]
  2. BLEOMYCIN SULFATE [Suspect]
  3. LAMOTRIGINE [Concomitant]

REACTIONS (5)
  - PYREXIA [None]
  - WHITE BLOOD CELL COUNT DECREASED [None]
  - HEADACHE [None]
  - CHILLS [None]
  - HYPOTENSION [None]
